FAERS Safety Report 7677752-0 (Version None)
Quarter: 2011Q3

REPORT INFORMATION
  Report Type: 
  Country: None (occurrence: None)
  Receive Date: 20110811
  Receipt Date: 20110809
  Transmission Date: 20111222
  Serious: Yes (Other)
  Sender: FDA-Public Use
  Company Number: JP-PFIZER INC-2011043823

PATIENT
  Sex: Male

DRUGS (3)
  1. HALCION [Suspect]
     Dosage: UNK
  2. LYRICA [Suspect]
     Dosage: 375 MG DAILY
     Route: 048
  3. LYRICA [Suspect]
     Indication: PAIN
     Dosage: 75 MG IN THE MORNING AND 150 MG BEFORE SLEEP
     Route: 048
     Dates: start: 20101001

REACTIONS (9)
  - NECK PAIN [None]
  - ASTHENIA [None]
  - DYSKINESIA [None]
  - MYALGIA [None]
  - URINARY INCONTINENCE [None]
  - HALLUCINATION, AUDITORY [None]
  - CONSTIPATION [None]
  - DIZZINESS [None]
  - RASH ERYTHEMATOUS [None]
